FAERS Safety Report 6913215-5 (Version None)
Quarter: 2010Q3

REPORT INFORMATION
  Report Type: 
  Country: None (occurrence: None)
  Receive Date: 20100809
  Receipt Date: 20100803
  Transmission Date: 20110219
  Serious: Yes (Other)
  Sender: FDA-Public Use
  Company Number: US-ASTRAZENECA-2007UW25291

PATIENT
  Age: 34 Year
  Sex: Female
  Weight: 131.5 kg

DRUGS (17)
  1. SEROQUEL [Suspect]
     Indication: MAJOR DEPRESSION
     Dosage: 10-450 MG
     Route: 048
     Dates: start: 20021127
  2. SEROQUEL [Suspect]
     Indication: ANXIETY DISORDER
     Dosage: 10-450 MG
     Route: 048
     Dates: start: 20021127
  3. SEROQUEL [Suspect]
     Indication: NIGHTMARE
     Dosage: 10-450 MG
     Route: 048
     Dates: start: 20021127
  4. SEROQUEL [Suspect]
     Indication: INSOMNIA
     Dosage: 10-450 MG
     Route: 048
     Dates: start: 20021127
  5. SEROQUEL [Suspect]
     Dosage: 150-450 MG
     Route: 048
     Dates: start: 20031006, end: 20041001
  6. SEROQUEL [Suspect]
     Dosage: 150-450 MG
     Route: 048
     Dates: start: 20031006, end: 20041001
  7. SEROQUEL [Suspect]
     Dosage: 150-450 MG
     Route: 048
     Dates: start: 20031006, end: 20041001
  8. SEROQUEL [Suspect]
     Dosage: 150-450 MG
     Route: 048
     Dates: start: 20031006, end: 20041001
  9. SEROQUEL [Suspect]
     Route: 048
     Dates: start: 20041101, end: 20051201
  10. SEROQUEL [Suspect]
     Route: 048
     Dates: start: 20041101, end: 20051201
  11. SEROQUEL [Suspect]
     Route: 048
     Dates: start: 20041101, end: 20051201
  12. SEROQUEL [Suspect]
     Route: 048
     Dates: start: 20041101, end: 20051201
  13. LEXAPRO [Concomitant]
     Dates: start: 20030318
  14. PREVACID [Concomitant]
     Route: 048
     Dates: start: 20021021, end: 20040825
  15. ZOLOFT [Concomitant]
     Dates: start: 20040825
  16. LIPITOR [Concomitant]
     Dates: start: 20040825
  17. PROTONIX [Concomitant]
     Dates: start: 20040825

REACTIONS (12)
  - ASTHMA [None]
  - BACK PAIN [None]
  - CHEST DISCOMFORT [None]
  - EYE DISORDER [None]
  - FLUSHING [None]
  - HYPERGLYCAEMIA [None]
  - HYPERTENSION [None]
  - INTERVERTEBRAL DISC PROTRUSION [None]
  - OBESITY [None]
  - PULMONARY EMBOLISM [None]
  - RASH [None]
  - TYPE 2 DIABETES MELLITUS [None]
